FAERS Safety Report 8243690-8 (Version None)
Quarter: 2012Q1

REPORT INFORMATION
  Report Type: 
  Country: None (occurrence: None)
  Receive Date: 20120309
  Receipt Date: 20110124
  Transmission Date: 20120608
  Serious: Yes (Other)
  Sender: FDA-Public Use
  Company Number: 213194

PATIENT
  Age: 53 Year
  Sex: Female
  Weight: 129 kg

DRUGS (12)
  1. COZAAR [Concomitant]
  2. CENTRUM SILVER (CENTRUM SILVER /01292501/) [Concomitant]
  3. SIMVASTATIN [Concomitant]
  4. ASPIRIN [Concomitant]
  5. BACTRIM [Concomitant]
  6. VITAMIN D (ERGOCACLCIFEROL) [Concomitant]
  7. CALCIPOTRIENE AND BETAMETHASONE DIPROPIONATE [Suspect]
     Indication: PSORIASIS
     Dosage: AT BEDTIME, TOPICAL
     Route: 061
     Dates: start: 20101201, end: 20101213
  8. AMITRIPTYLINE HCL [Concomitant]
  9. PRILOSEC [Concomitant]
  10. ATENOLOL [Concomitant]
  11. VESICARE [Concomitant]
  12. VAGISAN (VAGISAN /02188201/) [Concomitant]

REACTIONS (2)
  - OEDEMA PERIPHERAL [None]
  - FOOD POISONING [None]
